FAERS Safety Report 5785551-X (Version None)
Quarter: 2008Q2

REPORT INFORMATION
  Report Type: 
  Country: None (occurrence: None)
  Receive Date: 20080605
  Receipt Date: 20080220
  Transmission Date: 20081010
  Serious: No
  Sender: FDA-Public Use
  Company Number: A0710675A

PATIENT
  Age: 55 Year
  Sex: Female

DRUGS (2)
  1. ALLI [Suspect]
     Dates: start: 20080101, end: 20080219
  2. BLOOD PRESSURE MEDICATION [Concomitant]

REACTIONS (3)
  - FLATULENCE [None]
  - KIDNEY INFECTION [None]
  - RECTAL DISCHARGE [None]
